FAERS Safety Report 4469129-6 (Version None)
Quarter: 2004Q4

REPORT INFORMATION
  Report Type: 
  Country: None (occurrence: None)
  Receive Date: 20041001
  Receipt Date: 20040922
  Transmission Date: 20050328
  Serious: Yes (Hospitalization)
  Sender: FDA-Public Use
  Company Number: 163-20785-04090574

PATIENT
  Age: 29 Year
  Sex: Female

DRUGS (1)
  1. THALOMID [Suspect]
     Indication: MALIGNANT MELANOMA
     Dosage: 200 MG, DAILY, ORAL
     Route: 048
     Dates: start: 20040827

REACTIONS (4)
  - DYSPNOEA [None]
  - FLUID RETENTION [None]
  - HYPOALBUMINAEMIA [None]
  - PLEURAL EFFUSION [None]
